FAERS Safety Report 26097829 (Version 1)
Quarter: 2025Q4

REPORT INFORMATION
  Report Type: Report from Study
  Country: US (occurrence: US)
  Receive Date: 20251127
  Receipt Date: 20251127
  Transmission Date: 20260118
  Serious: Yes (Death)
  Sender: ROCHE
  Company Number: US-ROCHE-10000443207

PATIENT
  Age: 57 Year
  Sex: Female

DRUGS (1)
  1. OCREVUS [Suspect]
     Active Substance: OCRELIZUMAB
     Indication: Multiple sclerosis
     Dosage: INFUSED ON 23/DEC/2022 AND 11/JUL/2023?MOST RECENT INFUSION ON 11/JUL/2024??300 MG ON DAY 0 AND 14 T
     Route: 042
     Dates: start: 20211208, end: 20230711

REACTIONS (2)
  - Death [Fatal]
  - Off label use [Unknown]
